FAERS Safety Report 7139468-9 (Version None)
Quarter: 2010Q4

REPORT INFORMATION
  Report Type: 
  Country: None (occurrence: None)
  Receive Date: 20101206
  Receipt Date: 20101124
  Transmission Date: 20110411
  Serious: Yes (Other)
  Sender: FDA-Public Use
  Company Number: IT-PFIZER INC-2010163866

PATIENT
  Age: 38 Year
  Sex: Female

DRUGS (3)
  1. ATARAX [Suspect]
     Indication: EATING DISORDER
     Dosage: 25 MG, 2X/DAY (20 TABLETS)
     Route: 048
     Dates: start: 20100625, end: 20100701
  2. FARGANESSE [Suspect]
     Indication: EATING DISORDER
     Dosage: 25 MG, 1X/DAY (20 TABLETS)
     Route: 048
     Dates: start: 20100625, end: 20100701
  3. FELISON [Concomitant]
     Indication: EATING DISORDER
     Dosage: 30 MG, 1X/DAY (30 CAPSULES)
     Route: 048
     Dates: start: 20100625, end: 20100701

REACTIONS (2)
  - ANTICHOLINERGIC SYNDROME [None]
  - EXTRAPYRAMIDAL DISORDER [None]
